FAERS Safety Report 19464682 (Version 2)
Quarter: 2021Q2

REPORT INFORMATION
  Report Type: Report from Study
  Country: GB (occurrence: GB)
  Receive Date: 20210626
  Receipt Date: 20210626
  Transmission Date: 20210717
  Serious: Yes (Death, Other)
  Sender: FDA-Public Use
  Company Number: NVSC2021GB140871

PATIENT
  Age: 58 Year
  Sex: Female

DRUGS (14)
  1. LUTATHERA [Suspect]
     Active Substance: LUTETIUM OXODOTREOTIDE LU-177
     Dosage: 7230 MBQ (CYCLE 6)
     Route: 042
     Dates: start: 20190924
  2. SANDOSTATIN LAR DEPOT [Suspect]
     Active Substance: OCTREOTIDE ACETATE
     Dosage: 10 MG
     Route: 030
     Dates: start: 201703
  3. TEMOZOLOMIDE. [Concomitant]
     Active Substance: TEMOZOLOMIDE
     Indication: PRODUCT USED FOR UNKNOWN INDICATION
     Dosage: UNK
     Route: 065
     Dates: start: 202008
  4. SANDOSTATIN LAR DEPOT [Suspect]
     Active Substance: OCTREOTIDE ACETATE
     Dosage: 20 MG
     Route: 030
  5. LUTATHERA [Suspect]
     Active Substance: LUTETIUM OXODOTREOTIDE LU-177
     Indication: NEUROENDOCRINE TUMOUR
     Dosage: 7880 MBQ (1 CYCLE)
     Route: 042
     Dates: start: 20161130
  6. SANDOSTATIN LAR DEPOT [Suspect]
     Active Substance: OCTREOTIDE ACETATE
     Indication: NEUROENDOCRINE TUMOUR
     Dosage: 30 MG
     Route: 030
     Dates: start: 201504
  7. LUTATHERA [Suspect]
     Active Substance: LUTETIUM OXODOTREOTIDE LU-177
     Dosage: 7370 MBQ (CYCLE 5)
     Route: 042
     Dates: start: 20190611
  8. SANDOSTATIN LAR DEPOT [Suspect]
     Active Substance: OCTREOTIDE ACETATE
     Dosage: 30 MG
     Route: 030
     Dates: start: 201511, end: 201603
  9. SANDOSTATIN LAR DEPOT [Suspect]
     Active Substance: OCTREOTIDE ACETATE
     Dosage: 30 MG
     Route: 030
     Dates: start: 201708
  10. LUTATHERA [Suspect]
     Active Substance: LUTETIUM OXODOTREOTIDE LU-177
     Dosage: 7920 MBQ (CYCLE 2)
     Route: 042
     Dates: start: 20170214
  11. LUTATHERA [Suspect]
     Active Substance: LUTETIUM OXODOTREOTIDE LU-177
     Dosage: 7080 MBQ (CYCLE 3)
     Route: 042
     Dates: start: 20170425
  12. GALLIUM (68GA) EDOTREOTIDE [Suspect]
     Active Substance: EDOTREOTIDE GALLIUM GA-68
     Indication: PRODUCT USED FOR UNKNOWN INDICATION
     Dosage: UNK
     Route: 065
  13. CAPECITABINE. [Concomitant]
     Active Substance: CAPECITABINE
     Indication: PRODUCT USED FOR UNKNOWN INDICATION
     Route: 065
  14. LUTATHERA [Suspect]
     Active Substance: LUTETIUM OXODOTREOTIDE LU-177
     Dosage: 7700 MBQ (CYCLE 4)
     Route: 042
     Dates: start: 20170823

REACTIONS (18)
  - Metastases to breast [Unknown]
  - Night sweats [Unknown]
  - Drug intolerance [Unknown]
  - Flushing [Unknown]
  - Product use in unapproved indication [Recovered/Resolved]
  - Lymphadenopathy [Unknown]
  - Breast cancer [Unknown]
  - Breast mass [Unknown]
  - Blood chromogranin A increased [Unknown]
  - Metastases to liver [Unknown]
  - Dyspnoea [Unknown]
  - Gastrointestinal disorder [Unknown]
  - Retroperitoneal neoplasm metastatic [Unknown]
  - Hydronephrosis [Unknown]
  - Fatigue [Unknown]
  - Metastases to lymph nodes [Unknown]
  - Death [Fatal]
  - Metastases to bone [Unknown]

NARRATIVE: CASE EVENT DATE: 201511
